FAERS Safety Report 20115151 (Version 1)
Quarter: 2021Q4

REPORT INFORMATION
  Report Type: Spontaneous
  Country: DE (occurrence: DE)
  Receive Date: 20211125
  Receipt Date: 20211125
  Transmission Date: 20220303
  Serious: Yes (Hospitalization, Other)
  Sender: FDA-Public Use
  Company Number: DE-ABBVIE-21K-062-4175260-00

PATIENT
  Age: 54 Year
  Sex: Male

DRUGS (7)
  1. VALPROIC ACID [Suspect]
     Active Substance: VALPROIC ACID
     Indication: Product used for unknown indication
     Dosage: 1.5-0-1.5-0
     Route: 048
  2. BIOTIN [Concomitant]
     Active Substance: BIOTIN
     Indication: Product used for unknown indication
     Route: 065
  3. PHENOBARBITAL SODIUM [Concomitant]
     Active Substance: PHENOBARBITAL SODIUM
     Indication: Product used for unknown indication
     Route: 065
  4. LEVOTHYROXINUM NATRICUM [Concomitant]
     Indication: Product used for unknown indication
     Route: 065
  5. EMSER SOLE [Concomitant]
     Indication: Product used for unknown indication
     Route: 065
  6. LEVETIRACETAM [Concomitant]
     Active Substance: LEVETIRACETAM
     Indication: Product used for unknown indication
     Route: 065
  7. CHOLECALCIFEROL [Concomitant]
     Active Substance: CHOLECALCIFEROL
     Indication: Product used for unknown indication
     Route: 065

REACTIONS (5)
  - Electrolyte imbalance [Unknown]
  - Haematemesis [Unknown]
  - Condition aggravated [Unknown]
  - Pallor [Unknown]
  - Anaemia [Unknown]
